FAERS Safety Report 9641884 (Version 1)
Quarter: 2013Q4

REPORT INFORMATION
  Report Type: Report from Study
  Country: ID (occurrence: ID)
  Receive Date: 20131023
  Receipt Date: 20131023
  Transmission Date: 20140711
  Serious: Yes (Death, Other)
  Sender: FDA-Public Use
  Company Number: ID-ROCHE-1291794

PATIENT
  Age: 70 Year
  Sex: Male

DRUGS (2)
  1. BONVIVA [Suspect]
     Indication: OSTEOPOROSIS
     Route: 048
  2. BONVIVA [Suspect]
     Dosage: ON 27/SEP/2013, HE RECEIVED IBANDRONIC ACID 6X.
     Route: 048

REACTIONS (3)
  - Death [Fatal]
  - Pneumonia [Unknown]
  - General physical health deterioration [Unknown]
